FAERS Safety Report 14579130 (Version 1)
Quarter: 2018Q1

REPORT INFORMATION
  Report Type: Spontaneous
  Country: CH (occurrence: CH)
  Receive Date: 20180227
  Receipt Date: 20180227
  Transmission Date: 20180509
  Serious: Yes (Hospitalization)
  Sender: FDA-Public Use
  Company Number: CH-TEVA-2018-CH-861295

PATIENT
  Age: 84 Year
  Sex: Female

DRUGS (9)
  1. SORTIS [Concomitant]
     Active Substance: ATORVASTATIN
  2. ESTAZOLAM. [Concomitant]
     Active Substance: ESTAZOLAM
  3. XULTOPHY 100/3.6 [Suspect]
     Active Substance: INSULIN DEGLUDEC\LIRAGLUTIDE
     Dosage: PRE FILLED SYRINGES, PENS
     Route: 030
     Dates: end: 20171207
  4. METFORMIN [Suspect]
     Active Substance: METFORMIN HYDROCHLORIDE
     Route: 048
     Dates: end: 20171207
  5. EUTHYROX [Concomitant]
     Active Substance: LEVOTHYROXINE SODIUM
  6. ASPIRIN CARDIO [Concomitant]
     Active Substance: ASPIRIN
  7. BELOC ZOK [Concomitant]
     Active Substance: METOPROLOL SUCCINATE
  8. TOREM [Concomitant]
     Active Substance: TORSEMIDE
  9. DIAMICRON MR [Suspect]
     Active Substance: GLICLAZIDE
     Dosage: TABLETS, OTHER
     Route: 048
     Dates: end: 20171207

REACTIONS (2)
  - Hypoglycaemic coma [Recovered/Resolved]
  - Drug administration error [Recovered/Resolved]

NARRATIVE: CASE EVENT DATE: 201712
